FAERS Safety Report 5702751-5 (Version None)
Quarter: 2008Q2

REPORT INFORMATION
  Report Type: 
  Country: None (occurrence: None)
  Receive Date: 20080411
  Receipt Date: 20080402
  Transmission Date: 20081010
  Serious: Yes (Hospitalization)
  Sender: FDA-Public Use
  Company Number: B0515101A

PATIENT
  Age: 84 Year
  Sex: Female

DRUGS (3)
  1. AUGMENTIN '125' [Suspect]
     Dosage: 2SAC PER DAY
     Route: 048
     Dates: start: 20080120, end: 20080124
  2. ROCEPHIN [Suspect]
     Dosage: 1G PER DAY
     Route: 030
     Dates: start: 20080125, end: 20080130
  3. TAVANIC [Concomitant]
     Route: 048
     Dates: start: 20080209

REACTIONS (9)
  - ANOREXIA [None]
  - FALL [None]
  - GENERAL PHYSICAL HEALTH DETERIORATION [None]
  - LEUKOPENIA [None]
  - LUNG INFECTION [None]
  - NEUTROPENIA [None]
  - RESPIRATORY TRACT CONGESTION [None]
  - VOMITING [None]
  - VULVITIS [None]
